FAERS Safety Report 8063962-X (Version None)
Quarter: 2012Q1

REPORT INFORMATION
  Report Type: 
  Country: None (occurrence: None)
  Receive Date: 20120123
  Receipt Date: 20120112
  Transmission Date: 20120608
  Serious: Yes (Other)
  Sender: FDA-Public Use
  Company Number: US-BAYER-2011-087313

PATIENT
  Age: 24 Year
  Sex: Female
  Weight: 57 kg

DRUGS (2)
  1. YAZ [Suspect]
     Indication: CONTRACEPTION
     Dosage: UNK
     Dates: start: 20090101, end: 20090101
  2. ZOLOFT [Concomitant]
     Indication: DEPRESSION
     Dosage: UNK UNK, QD (1 TABLET/DAILY)
     Route: 048

REACTIONS (6)
  - CHOLECYSTECTOMY [None]
  - DEPRESSION [None]
  - BILE DUCT OBSTRUCTION [None]
  - PAIN [None]
  - CHOLECYSTITIS CHRONIC [None]
  - INJURY [None]
